FAERS Safety Report 15491621 (Version 2)
Quarter: 2018Q4

REPORT INFORMATION
  Report Type: Report from Study
  Country: None (occurrence: DE)
  Receive Date: 20181012
  Receipt Date: 20181214
  Transmission Date: 20190205
  Serious: Yes (Hospitalization)
  Sender: FDA-Public Use
  Company Number: DE-ABBVIE-18S-062-2515490-00

PATIENT
  Sex: Male

DRUGS (15)
  1. DUODOPA [Suspect]
     Active Substance: CARBIDOPA\LEVODOPA
     Dosage: MD 6.0 ML; CRD 1.6 ML/HR; ED 1.0 ML
     Route: 050
     Dates: start: 2018
  2. BISOPROLOL [Concomitant]
     Active Substance: BISOPROLOL
     Indication: PRODUCT USED FOR UNKNOWN INDICATION
     Route: 065
  3. LEVOCOMP RETARD [Concomitant]
     Indication: PRODUCT USED FOR UNKNOWN INDICATION
     Dosage: 100 MG/ 25 MG
     Route: 065
  4. RIVASTIGMIN [Concomitant]
     Active Substance: RIVASTIGMINE
     Indication: PRODUCT USED FOR UNKNOWN INDICATION
  5. ISICOM [Concomitant]
     Active Substance: CARBIDOPA\LEVODOPA
     Indication: PRODUCT USED FOR UNKNOWN INDICATION
     Dosage: 200/50 MG
  6. MADOPAR LT [Concomitant]
     Active Substance: BENSERAZIDE HYDROCHLORIDE\LEVODOPA
     Indication: PRODUCT USED FOR UNKNOWN INDICATION
     Dosage: IN THE MORNING
     Route: 065
     Dates: end: 2018
  7. VITAMIN B12 COMPLEX [Concomitant]
     Indication: PRODUCT USED FOR UNKNOWN INDICATION
  8. PANTOPRAZOLE HEXAL [Concomitant]
     Indication: PRODUCT USED FOR UNKNOWN INDICATION
     Route: 065
  9. TAMSULOSIN AL [Concomitant]
     Indication: PRODUCT USED FOR UNKNOWN INDICATION
     Route: 065
  10. IBUFLAM [Concomitant]
     Active Substance: IBUPROFEN
     Indication: ARTHRALGIA
     Dosage: AS NEEDED 1 TABLET DAILY
     Route: 065
  11. FOLIC ACID. [Concomitant]
     Active Substance: FOLIC ACID
     Indication: PRODUCT USED FOR UNKNOWN INDICATION
  12. VITAMIN B6 [Concomitant]
     Active Substance: PYRIDOXINE HYDROCHLORIDE
     Indication: PRODUCT USED FOR UNKNOWN INDICATION
     Route: 065
  13. QUETIAPINE. [Concomitant]
     Active Substance: QUETIAPINE
     Indication: PRODUCT USED FOR UNKNOWN INDICATION
  14. MOVICOL [Concomitant]
     Active Substance: POLYETHYLENE GLYCOL 3350\POTASSIUM CHLORIDE\SODIUM BICARBONATE\SODIUM CHLORIDE
     Indication: PRODUCT USED FOR UNKNOWN INDICATION
     Dosage: 1 SACHET
  15. DUODOPA [Suspect]
     Active Substance: CARBIDOPA\LEVODOPA
     Indication: PARKINSON^S DISEASE
     Dosage: MD 6.0 ML; CRD 2.1 ML/HR; ED 2.0 ML
     Route: 050
     Dates: start: 20170926, end: 2018

REACTIONS (28)
  - Chorea [Unknown]
  - Dopamine dysregulation syndrome [Unknown]
  - Cognitive disorder [Unknown]
  - Depressed mood [Unknown]
  - Restlessness [Unknown]
  - Micturition urgency [Unknown]
  - Urge incontinence [Unknown]
  - Dysarthria [Unknown]
  - Hyperhidrosis [Unknown]
  - Asthma [Unknown]
  - Freezing phenomenon [Unknown]
  - Mood disorder due to a general medical condition [Unknown]
  - Dysphagia [Unknown]
  - Hyperkinesia [Unknown]
  - Overdose [Unknown]
  - On and off phenomenon [Recovering/Resolving]
  - Gait disturbance [Unknown]
  - Dyskinesia [Recovering/Resolving]
  - Memory impairment [Unknown]
  - Dry mouth [Unknown]
  - Weight decreased [Not Recovered/Not Resolved]
  - Apathy [Unknown]
  - Speech disorder [Unknown]
  - Sleep apnoea syndrome [Unknown]
  - Intervertebral disc protrusion [Unknown]
  - Constipation [Unknown]
  - Musculoskeletal pain [Not Recovered/Not Resolved]
  - Muscle spasms [Unknown]

NARRATIVE: CASE EVENT DATE: 201804
